FAERS Safety Report 20054823 (Version 1)
Quarter: 2021Q4

REPORT INFORMATION
  Report Type: Spontaneous
  Country: FR (occurrence: FR)
  Receive Date: 20211110
  Receipt Date: 20211110
  Transmission Date: 20220303
  Serious: Yes (Death, Congenital Anomaly)
  Sender: FDA-Public Use
  Company Number: FR-NOVARTISPH-NVSC2021FR256090

PATIENT

DRUGS (10)
  1. DIAZEPAM [Suspect]
     Active Substance: DIAZEPAM
     Indication: Foetal exposure during pregnancy
     Dosage: UNK
     Route: 064
  2. LABETALOL [Suspect]
     Active Substance: LABETALOL\LABETALOL HYDROCHLORIDE
     Indication: Foetal exposure during pregnancy
     Dosage: UNK
     Route: 064
  3. BROMAZEPAM [Suspect]
     Active Substance: BROMAZEPAM
     Indication: Foetal exposure during pregnancy
     Dosage: UNK (MATERNAL DOSE:2 DF,1 TABLET MORNING AND EVENING)
     Route: 064
  4. OXAZEPAM [Suspect]
     Active Substance: OXAZEPAM
     Indication: Foetal exposure during pregnancy
     Dosage: UNK (MATERNAL DOSE:1 DF, 1 TABLET EVENING)
     Route: 064
  5. ASPIRIN [Suspect]
     Active Substance: ASPIRIN
     Indication: Foetal exposure during pregnancy
     Dosage: UNK
     Route: 064
  6. LORAZEPAM [Suspect]
     Active Substance: LORAZEPAM
     Indication: Foetal exposure during pregnancy
     Dosage: UNK (MATERNAL DOSE:3 DF,1 TABLET MORNING, NOON AND EVENING)
     Route: 064
  7. ETIFOXINE [Suspect]
     Active Substance: ETIFOXINE
     Indication: Foetal exposure during pregnancy
     Dosage: UNK
     Route: 064
  8. NOVORAPID [Suspect]
     Active Substance: INSULIN ASPART
     Indication: Foetal exposure during pregnancy
     Dosage: UNK
     Route: 064
  9. INSULIN GLARGINE [Suspect]
     Active Substance: INSULIN GLARGINE
     Indication: Foetal exposure during pregnancy
     Dosage: UNK
     Route: 064
  10. ZOLPIDEM TARTRATE [Suspect]
     Active Substance: ZOLPIDEM TARTRATE
     Indication: Foetal exposure during pregnancy
     Dosage: UNK
     Route: 064

REACTIONS (2)
  - Multiple congenital abnormalities [Fatal]
  - Foetal exposure during pregnancy [Fatal]
